FAERS Safety Report 12642439 (Version 2)
Quarter: 2016Q3

REPORT INFORMATION
  Report Type: Spontaneous
  Country: US (occurrence: US)
  Receive Date: 20160810
  Receipt Date: 20160901
  Transmission Date: 20161109
  Serious: Yes (Hospitalization, Other)
  Sender: FDA-Public Use
  Company Number: US-RELYPSA-RLY2016001706

PATIENT
  Age: 63 Year
  Sex: Female

DRUGS (10)
  1. TYLENOL [Concomitant]
     Active Substance: ACETAMINOPHEN
  2. NOVOLOG [Concomitant]
     Active Substance: INSULIN ASPART
  3. HYDROXYZINE [Concomitant]
     Active Substance: HYDROXYZINE\HYDROXYZINE HYDROCHLORIDE
     Dosage: 50 MG, UNK
  4. PANTOPRAZOLE [Concomitant]
     Active Substance: PANTOPRAZOLE SODIUM
  5. VELTASSA [Suspect]
     Active Substance: PATIROMER
     Indication: BLOOD POTASSIUM INCREASED
     Dosage: UNKNOWN
     Route: 065
     Dates: start: 20160313, end: 20160324
  6. RITUXIMAB [Concomitant]
     Active Substance: RITUXIMAB
     Dosage: 608 MG, UNKNOWN
     Route: 042
     Dates: start: 20160307
  7. TORSEMIDE. [Concomitant]
     Active Substance: TORSEMIDE
     Dosage: 20 MG, UNK
  8. LANTUS [Concomitant]
     Active Substance: INSULIN GLARGINE
  9. TRAZODONE [Concomitant]
     Active Substance: TRAZODONE HYDROCHLORIDE
     Dosage: 150 MG, UNK
  10. RITUXIMAB [Concomitant]
     Active Substance: RITUXIMAB
     Dosage: 608 MG, UNKNOWN
     Route: 042
     Dates: start: 20160406

REACTIONS (2)
  - Diarrhoea [Recovered/Resolved]
  - Haematochezia [Recovered/Resolved]

NARRATIVE: CASE EVENT DATE: 201603
